FAERS Safety Report 8473571-6 (Version None)
Quarter: 2012Q2

REPORT INFORMATION
  Report Type: 
  Country: None (occurrence: None)
  Receive Date: 20120628
  Receipt Date: 20110728
  Transmission Date: 20120825
  Serious: Yes (Other)
  Sender: FDA-Public Use
  Company Number: US-MYLANLABS-2011S1011876

PATIENT
  Age: 76 Year
  Sex: Male

DRUGS (6)
  1. CELEXA [Concomitant]
  2. CLOZAPINE [Suspect]
     Indication: SCHIZOPHRENIA
     Route: 048
     Dates: end: 20110531
  3. CLOZAPINE [Suspect]
     Route: 048
     Dates: end: 20110531
  4. POTASSIUM ACETATE [Concomitant]
  5. ATARAX [Concomitant]
  6. LASIX [Concomitant]

REACTIONS (2)
  - LEUKOPENIA [None]
  - GRANULOCYTOPENIA [None]
